FAERS Safety Report 6734115-X (Version None)
Quarter: 2010Q2

REPORT INFORMATION
  Report Type: 
  Country: None (occurrence: None)
  Receive Date: 20100520
  Receipt Date: 20100514
  Transmission Date: 20101027
  Serious: Yes (Other)
  Sender: FDA-Public Use
  Company Number: JP-SANOFI-AVENTIS-2010SA027955

PATIENT
  Age: 83 Year
  Sex: Male
  Weight: 52 kg

DRUGS (4)
  1. RASURITEK INTRAVENOUS [Suspect]
     Indication: HYPERURICAEMIA
     Route: 041
     Dates: start: 20100406, end: 20100410
  2. IDARUBICIN HCL [Concomitant]
     Route: 042
     Dates: start: 20100407, end: 20100409
  3. CYLOCIDE [Concomitant]
     Route: 065
     Dates: start: 20100407
  4. SOLU-MEDROL [Concomitant]
     Route: 065

REACTIONS (1)
  - JAUNDICE [None]
